FAERS Safety Report 7207608-9 (Version None)
Quarter: 2011Q1

REPORT INFORMATION
  Report Type: 
  Country: None (occurrence: None)
  Receive Date: 20110103
  Receipt Date: 20101227
  Transmission Date: 20110831
  Serious: Yes (Life-Threatening, Hospitalization)
  Sender: FDA-Public Use
  Company Number: SE-CEPHALON-2011000004

PATIENT
  Sex: Female

DRUGS (3)
  1. PREDNISOLONE [Concomitant]
  2. MABTHERA [Concomitant]
     Indication: MANTLE CELL LYMPHOMA
     Dates: start: 20101126
  3. TREANDA [Suspect]
     Indication: MANTLE CELL LYMPHOMA
     Route: 042
     Dates: start: 20101125, end: 20101126

REACTIONS (5)
  - NEUTROPENIC SEPSIS [None]
  - VOMITING [None]
  - CONTUSION [None]
  - EPISTAXIS [None]
  - NAUSEA [None]
